FAERS Safety Report 11909693 (Version 1)
Quarter: 2016Q1

REPORT INFORMATION
  Report Type: Spontaneous
  Country: US (occurrence: None)
  Receive Date: 20160111
  Receipt Date: 20160111
  Transmission Date: 20160526
  Serious: Yes (Other)
  Sender: FDA-Public Use
  Company Number: None

PATIENT
  Age: 77 Year
  Sex: Male
  Weight: 88.45 kg

DRUGS (11)
  1. ASPIRIN. [Concomitant]
     Active Substance: ASPIRIN
  2. CEPHALEXIN 500 MG LUPIN [Suspect]
     Active Substance: CEPHALEXIN
     Indication: ANTIBIOTIC PROPHYLAXIS
     Route: 048
     Dates: start: 20160106, end: 20160107
  3. EPLERONONE [Concomitant]
  4. CALCIUM [Concomitant]
     Active Substance: CALCIUM
  5. SIMVASTATIN. [Concomitant]
     Active Substance: SIMVASTATIN
  6. KCL [Concomitant]
     Active Substance: POTASSIUM CHLORIDE
  7. VITAMIN C [Concomitant]
     Active Substance: ASCORBIC ACID
  8. VITAMIN D [Concomitant]
     Active Substance: CHOLECALCIFEROL
  9. MULTIVITAMIN [Concomitant]
     Active Substance: VITAMINS
  10. ATENOLOL. [Concomitant]
     Active Substance: ATENOLOL
  11. GABAPENTIN. [Concomitant]
     Active Substance: GABAPENTIN

REACTIONS (4)
  - Weight increased [None]
  - Urine output decreased [None]
  - Oedema peripheral [None]
  - Fluid retention [None]

NARRATIVE: CASE EVENT DATE: 20160107
